FAERS Safety Report 6321151-0 (Version None)
Quarter: 2009Q3

REPORT INFORMATION
  Report Type: 
  Country: None (occurrence: None)
  Receive Date: 20090822
  Receipt Date: 20090309
  Transmission Date: 20100115
  Serious: No
  Sender: FDA-Public Use
  Company Number: US-ABBOTT-08P-163-0491065-00

PATIENT
  Sex: Female

DRUGS (3)
  1. NIASPAN [Suspect]
     Indication: DRUG USE FOR UNKNOWN INDICATION
     Route: 048
     Dates: start: 20081121
  2. ADVIL [Concomitant]
     Indication: ARTHRITIS
  3. CELEBREX [Concomitant]
     Indication: ARTHRITIS

REACTIONS (2)
  - PRURITUS [None]
  - SENSORY DISTURBANCE [None]
